FAERS Safety Report 7103398-9 (Version None)
Quarter: 2010Q4

REPORT INFORMATION
  Report Type: 
  Country: None (occurrence: None)
  Receive Date: 20101115
  Receipt Date: 20101109
  Transmission Date: 20110411
  Serious: Yes (Life-Threatening, Other)
  Sender: FDA-Public Use
  Company Number: JP-BAYER-201015076BYL

PATIENT
  Age: 67 Year
  Sex: Female

DRUGS (8)
  1. AVELOX [Suspect]
     Indication: UPPER RESPIRATORY TRACT INFLAMMATION
     Dosage: TOTAL DAILY DOSE: 400 MG  UNIT DOSE: 400 MG
     Route: 048
     Dates: start: 20100924, end: 20100926
  2. UNIPHYL LA [Concomitant]
     Dosage: UNIT DOSE: 20 MG
     Route: 048
  3. ONON [Concomitant]
     Route: 048
  4. MUCOSOLVAN [Concomitant]
     Dosage: UNIT DOSE: 15 MG
     Route: 048
  5. HOKUNALIN [Concomitant]
     Dosage: UNIT DOSE: 2 MG
     Route: 062
  6. TAKEPRON [Concomitant]
     Dosage: UNIT DOSE: 15 MG
     Route: 048
  7. HALCION [Concomitant]
     Dosage: UNIT DOSE: 0.25 MG
     Route: 048
  8. HORIZON [Concomitant]
     Dosage: UNIT DOSE: 2 MG
     Route: 048

REACTIONS (6)
  - ANAPHYLACTIC REACTION [None]
  - DYSPHONIA [None]
  - NAUSEA [None]
  - PALPITATIONS [None]
  - RESPIRATORY FAILURE [None]
  - TREMOR [None]
